FAERS Safety Report 23647301 (Version 1)
Quarter: 2024Q1

REPORT INFORMATION
  Report Type: Spontaneous
  Country: US (occurrence: US)
  Receive Date: 20240319
  Receipt Date: 20240319
  Transmission Date: 20240410
  Serious: Yes (Hospitalization, Other)
  Sender: FDA-Public Use
  Company Number: US-AMGEN-USASP2024053808

PATIENT

DRUGS (4)
  1. BLINATUMOMAB [Suspect]
     Active Substance: BLINATUMOMAB
     Indication: Acute lymphocytic leukaemia
     Dosage: UNK
     Route: 065
  2. BLINATUMOMAB [Suspect]
     Active Substance: BLINATUMOMAB
     Indication: Non-Hodgkin^s lymphoma
  3. ENOXAPARIN [Concomitant]
     Active Substance: ENOXAPARIN
     Indication: Prophylaxis
     Dosage: UNK
     Route: 065
  4. SARS-CoV-2 vaccine [Concomitant]
     Indication: COVID-19
     Dosage: UNK
     Route: 065

REACTIONS (16)
  - Thrombosis [Unknown]
  - Deep vein thrombosis [Unknown]
  - Pulmonary embolism [Unknown]
  - Cerebral venous sinus thrombosis [Unknown]
  - COVID-19 [Unknown]
  - Febrile neutropenia [Unknown]
  - Pancreatitis [Unknown]
  - Seizure [Unknown]
  - Human metapneumovirus test positive [Unknown]
  - HCoV-OC43 infection [Unknown]
  - Rhinovirus infection [Unknown]
  - Enterovirus infection [Unknown]
  - Parainfluenzae virus infection [Unknown]
  - Respiratory syncytial virus infection [Unknown]
  - Adenovirus infection [Unknown]
  - Influenza [Unknown]
